FAERS Safety Report 7010927-2 (Version None)
Quarter: 2010Q3

REPORT INFORMATION
  Report Type: 
  Country: None (occurrence: None)
  Receive Date: 20100923
  Receipt Date: 20100923
  Transmission Date: 20110219
  Serious: Yes (Disabling)
  Sender: FDA-Public Use
  Company Number: None

PATIENT
  Sex: Male
  Weight: 81.6475 kg

DRUGS (3)
  1. AVODART [Suspect]
     Indication: POLYURIA
     Dosage: ONE DAILY MOUTH
     Route: 048
     Dates: start: 20080423, end: 20080930
  2. LABETALOL HCL [Concomitant]
  3. RAMIPRIL [Concomitant]

REACTIONS (4)
  - DRUG INEFFECTIVE [None]
  - ERECTILE DYSFUNCTION [None]
  - ORGASM ABNORMAL [None]
  - PENILE SIZE REDUCED [None]
